FAERS Safety Report 11095455 (Version 7)
Quarter: 2016Q3

REPORT INFORMATION
  Report Type: Spontaneous
  Country: US (occurrence: US)
  Receive Date: 20150506
  Receipt Date: 20160818
  Transmission Date: 20161109
  Serious: Yes (Hospitalization)
  Sender: FDA-Public Use
  Company Number: US-ACTELION-A-NJ2015-116041

PATIENT
  Age: 73 Year
  Sex: Male

DRUGS (13)
  1. TRACLEER [Suspect]
     Active Substance: BOSENTAN
     Indication: PULMONARY ARTERIAL HYPERTENSION
     Dosage: 125 MG, BID
     Route: 048
     Dates: start: 20141021
  2. PREDNISONE. [Concomitant]
     Active Substance: PREDNISONE
     Dosage: UNK, BID
     Dates: start: 20150326
  3. SIMVASTATIN. [Concomitant]
     Active Substance: SIMVASTATIN
  4. DILTIAZEM CD [Concomitant]
     Active Substance: DILTIAZEM
  5. CELLCEPT [Concomitant]
     Active Substance: MYCOPHENOLATE MOFETIL\MYCOPHENOLATE MOFETIL HYDROCHLORIDE
  6. SYMBICORT [Concomitant]
     Active Substance: BUDESONIDE\FORMOTEROL FUMARATE DIHYDRATE
  7. SILDENAFIL. [Concomitant]
     Active Substance: SILDENAFIL
     Dosage: 20 MG, QPM
     Dates: start: 20150427
  8. TYVASO [Concomitant]
     Active Substance: TREPROSTINIL
     Dosage: UNK, QID
     Route: 055
  9. LASIX [Concomitant]
     Active Substance: FUROSEMIDE
     Dosage: 40 MG, UNK
     Dates: start: 20141219
  10. GLIPIZIDE. [Concomitant]
     Active Substance: GLIPIZIDE
  11. FLUTICASONE [Concomitant]
     Active Substance: FLUTICASONE\FLUTICASONE PROPIONATE
  12. METOPROLOL SUCCINATE. [Concomitant]
     Active Substance: METOPROLOL SUCCINATE
  13. AMLODIPINE [Concomitant]
     Active Substance: AMLODIPINE BESYLATE
     Dosage: 10 MG, UNK

REACTIONS (13)
  - Influenza [Unknown]
  - Respiratory tract infection [Recovered/Resolved]
  - Pulmonary arterial hypertension [Unknown]
  - Upper respiratory tract infection [Recovered/Resolved]
  - Food poisoning [Recovered/Resolved]
  - Tooth extraction [Unknown]
  - Lethargy [Unknown]
  - Nasopharyngitis [Unknown]
  - Oxygen saturation decreased [Unknown]
  - Weight decreased [Recovered/Resolved]
  - Nasal congestion [Unknown]
  - Dyspnoea [Unknown]
  - Diarrhoea [Recovered/Resolved]

NARRATIVE: CASE EVENT DATE: 201504
